FAERS Safety Report 5279756-4 (Version None)
Quarter: 2007Q1

REPORT INFORMATION
  Report Type: 
  Country: None (occurrence: None)
  Receive Date: 20070329
  Receipt Date: 20070323
  Transmission Date: 20070707
  Serious: Yes (Hospitalization)
  Sender: FDA-Public Use
  Company Number: RB4866-2007

PATIENT
  Sex: Female
  Weight: 76.5 kg

DRUGS (6)
  1. SUBUTEX [Suspect]
     Indication: BACK PAIN
     Route: 060
     Dates: start: 20060701
  2. SUBUTEX [Suspect]
     Dosage: SHE TAKES 8MG IN THE MORNING AND 4MG IN THE AFTERNOON.
     Route: 060
  3. SUBOXONE [Suspect]
     Route: 060
     Dates: start: 20060101, end: 20060701
  4. PROMETHAZINE [Concomitant]
     Indication: NAUSEA
     Dosage: PHENERGAN 25 MG ONE -TWO  PRN DAILY FOR NAUSEA
     Route: 048
     Dates: start: 20060701, end: 20070315
  5. ZOFRAN [Concomitant]
     Indication: NAUSEA
     Dosage: 4 MG PER DAY AS NEEDED
     Route: 048
     Dates: start: 20060701, end: 20070315
  6. PROCARDIA [Concomitant]
     Indication: LABOUR PAIN
     Route: 048
     Dates: start: 20070122, end: 20070224

REACTIONS (5)
  - DRUG EXPOSURE DURING PREGNANCY [None]
  - LABOUR PAIN [None]
  - NAUSEA [None]
  - PREMATURE LABOUR [None]
  - VOMITING [None]
